FAERS Safety Report 5954200-X (Version None)
Quarter: 2008Q4

REPORT INFORMATION
  Report Type: 
  Country: None (occurrence: None)
  Receive Date: 20081113
  Receipt Date: 20081022
  Transmission Date: 20090506
  Serious: Yes (Disabling)
  Sender: FDA-Public Use
  Company Number: 20481

PATIENT
  Age: 63 Year
  Sex: Male
  Weight: 80 kg

DRUGS (4)
  1. IRINOTECAN HYDROCHLORIDE [Suspect]
     Indication: RECTAL CANCER METASTATIC
     Dates: start: 20080718, end: 20080919
  2. ELOXATIN [Suspect]
     Dosage: 350 MG/M2 UNK IV
     Route: 042
     Dates: start: 20080222, end: 20080222
  3. CAPECITABINE [Concomitant]
  4. DEXAMETHASONE [Concomitant]

REACTIONS (1)
  - NEUROPATHY PERIPHERAL [None]
